FAERS Safety Report 8061186-3 (Version None)
Quarter: 2012Q1

REPORT INFORMATION
  Report Type: 
  Country: None (occurrence: None)
  Receive Date: 20120120
  Receipt Date: 20120111
  Transmission Date: 20120608
  Serious: Yes (Other)
  Sender: FDA-Public Use
  Company Number: US-ASTRAZENECA-2008UW22965

PATIENT
  Age: 73 Year
  Sex: Female
  Weight: 63.5 kg

DRUGS (5)
  1. NEXIUM [Suspect]
     Indication: GASTROOESOPHAGEAL REFLUX DISEASE
     Route: 048
  2. FISH OIL [Concomitant]
  3. XANAX [Concomitant]
  4. CALCIUM CARBONATE [Concomitant]
  5. ALTACE [Concomitant]

REACTIONS (7)
  - FALLOPIAN TUBE CYST [None]
  - HEPATIC CYST [None]
  - THYROID NEOPLASM [None]
  - HEPATIC NEOPLASM [None]
  - OVARIAN CYST [None]
  - LUNG NEOPLASM [None]
  - BLOOD CREATINE PHOSPHOKINASE INCREASED [None]
